FAERS Safety Report 11350169 (Version 1)
Quarter: 2015Q3

REPORT INFORMATION
  Report Type: Spontaneous
  Country: US (occurrence: US)
  Receive Date: 20150807
  Receipt Date: 20150807
  Transmission Date: 20151125
  Serious: Yes (Hospitalization)
  Sender: FDA-Public Use
  Company Number: US-JNJFOC-20150723967

PATIENT
  Age: 80 Year
  Sex: Female
  Weight: 113.4 kg

DRUGS (1)
  1. XARELTO [Suspect]
     Active Substance: RIVAROXABAN
     Indication: PRODUCT USED FOR UNKNOWN INDICATION
     Route: 048
     Dates: start: 2012, end: 2012

REACTIONS (5)
  - Seizure [Recovered/Resolved]
  - Weight decreased [Unknown]
  - Coma [Recovered/Resolved]
  - Decreased appetite [Unknown]
  - Drug prescribing error [Unknown]

NARRATIVE: CASE EVENT DATE: 2012
